FAERS Safety Report 5069010-8 (Version None)
Quarter: 2006Q3

REPORT INFORMATION
  Report Type: 
  Country: None (occurrence: None)
  Receive Date: 20060801
  Receipt Date: 20060801
  Transmission Date: 20061208
  Serious: Yes (Other)
  Sender: FDA-Public Use
  Company Number: None

PATIENT
  Age: 55 Year
  Sex: Male
  Weight: 84.369 kg

DRUGS (1)
  1. ZOMETA [Suspect]
     Indication: METASTASIS
     Dosage: 4 MG Q4 WEEKS IV
     Route: 042
     Dates: start: 20050203, end: 20060316

REACTIONS (3)
  - HYPOAESTHESIA [None]
  - OSTEONECROSIS [None]
  - PAIN IN JAW [None]
